FAERS Safety Report 15643994 (Version 1)
Quarter: 2018Q4

REPORT INFORMATION
  Report Type: Spontaneous
  Country: GB (occurrence: GB)
  Receive Date: 20181121
  Receipt Date: 20181121
  Transmission Date: 20190205
  Serious: Yes (Hospitalization)
  Sender: FDA-Public Use
  Company Number: GB-PFIZER INC-2018473961

PATIENT
  Age: 77 Year

DRUGS (14)
  1. CIPROFLOXACIN. [Concomitant]
     Active Substance: CIPROFLOXACIN
     Dosage: UNK
  2. ABATACEPT [Suspect]
     Active Substance: ABATACEPT
     Dosage: 125MG/1ML SOLUTION FOR INJECTION PRE-FILLED DISPOSABLE DEVICES
  3. CALCIUM CARBONATE. [Concomitant]
     Active Substance: CALCIUM CARBONATE
     Dosage: 2.5 MG, 1X/DAY
  4. CELECOXIB. [Concomitant]
     Active Substance: CELECOXIB
     Dosage: 200 MG, 1X/DAY
  5. HYLO-FORTE [Concomitant]
     Active Substance: HYALURONATE SODIUM
     Dosage: AS NECESSARY (ONE DROP INTO EACH EYE THREE TIMES A DAY)
  6. METHOTREXATE SODIUM. [Suspect]
     Active Substance: METHOTREXATE SODIUM
     Dosage: 15 MG, WEEKLY
  7. COCODAMOL [Concomitant]
     Active Substance: ACETAMINOPHEN\CODEINE PHOSPHATE
     Dosage: AS NECESSARY (8MG/500MG 1 OR 2 4 TIMES DAILY)
  8. FOLIC ACID. [Concomitant]
     Active Substance: FOLIC ACID
     Dosage: 5 MG (ALTERNATE DAYS)
  9. NITROFURANTOIN. [Concomitant]
     Active Substance: NITROFURANTOIN
     Dosage: 200 MG, 1X/DAY (FOR 7 DAYS)
  10. COLECALCIFEROL [Concomitant]
     Active Substance: CHOLECALCIFEROL
     Dosage: 800 IU, 1X/DAY
  11. BENDROFLUMETHIAZIDE [Concomitant]
     Active Substance: BENDROFLUMETHIAZIDE
     Dosage: 2.5 MG, 1X/DAY (EVERY MORNINH)
  12. OMEPRAZOLE. [Concomitant]
     Active Substance: OMEPRAZOLE
     Dosage: 20 MG, 1X/DAY
  13. DOXAZOSIN [Concomitant]
     Active Substance: DOXAZOSIN\DOXAZOSIN MESYLATE
     Dosage: 4 MG, 1X/DAY
  14. GENTAMICIN. [Concomitant]
     Active Substance: GENTAMICIN
     Dosage: UNK

REACTIONS (4)
  - Kidney infection [Unknown]
  - Urinary tract infection [Recovered/Resolved]
  - Pyelonephritis [Unknown]
  - Groin pain [Unknown]

NARRATIVE: CASE EVENT DATE: 20180419
